FAERS Safety Report 23151752 (Version 2)
Quarter: 2023Q4

REPORT INFORMATION
  Report Type: Other
  Country: US (occurrence: None)
  Receive Date: 20231107
  Receipt Date: 20231107
  Transmission Date: 20240109
  Serious: No
  Sender: FDA-Public Use
  Company Number: US-ROCHE-3452605

PATIENT
  Age: 49 Year
  Sex: Female
  Weight: 90.8 kg

DRUGS (18)
  1. OCREVUS [Suspect]
     Active Substance: OCRELIZUMAB
     Indication: Relapsing-remitting multiple sclerosis
     Dosage: PRESCRIBED AS INFUSE 300MG INTRAVENOUSLY, REPEAT IN 2 WEEKS, THEN INFUSE 600MG EVERY 6 MONTHS, DATE
     Route: 042
  2. DALFAMPRIDINE [Concomitant]
     Active Substance: DALFAMPRIDINE
  3. MAGNESIUM GLYCINATE [Concomitant]
     Active Substance: MAGNESIUM GLYCINATE
  4. FINGOLIMOD [Concomitant]
     Active Substance: FINGOLIMOD
  5. NIFEDIPINE [Concomitant]
     Active Substance: NIFEDIPINE
  6. GABAPENTIN [Concomitant]
     Active Substance: GABAPENTIN
  7. BUTALBITAL [Concomitant]
     Active Substance: BUTALBITAL
  8. OMEPRAZOLE [Concomitant]
     Active Substance: OMEPRAZOLE
  9. CYANOCOBALAMIN [Concomitant]
     Active Substance: CYANOCOBALAMIN
  10. NAPROXEN [Concomitant]
     Active Substance: NAPROXEN
  11. DIETARY SUPPLEMENT\UBIDECARENONE [Concomitant]
     Active Substance: DIETARY SUPPLEMENT\UBIDECARENONE
  12. OXYBUTYNIN [Concomitant]
     Active Substance: OXYBUTYNIN
  13. ASPIRIN [Concomitant]
     Active Substance: ASPIRIN
  14. FLUCONAZOLE [Concomitant]
     Active Substance: FLUCONAZOLE
  15. VITAMIN E [Concomitant]
     Active Substance: .ALPHA.-TOCOPHEROL
  16. PRIMROSE [Concomitant]
  17. IBUPROFEN [Concomitant]
     Active Substance: IBUPROFEN
  18. VITAMIN B COMPLEX [Concomitant]
     Active Substance: CYANOCOBALAMIN\DEXPANTHENOL\NIACINAMIDE\PYRIDOXINE HYDROCHLORIDE\RIBOFLAVIN 5^-PHOSPHATE SODIUM\THIA

REACTIONS (2)
  - COVID-19 [Not Recovered/Not Resolved]
  - Off label use [Unknown]

NARRATIVE: CASE EVENT DATE: 20231006
